FAERS Safety Report 6608337-2 (Version None)
Quarter: 2010Q1

REPORT INFORMATION
  Report Type: 
  Country: None (occurrence: None)
  Receive Date: 20100301
  Receipt Date: 20100218
  Transmission Date: 20100710
  Serious: Yes (Hospitalization)
  Sender: FDA-Public Use
  Company Number: BR-ELI_LILLY_AND_COMPANY-BR201002005279

PATIENT
  Sex: Male
  Weight: 110 kg

DRUGS (9)
  1. BYETTA [Suspect]
     Indication: TYPE 2 DIABETES MELLITUS
     Dosage: 10 UG, DAILY (1/D)
     Route: 058
  2. DIMEFOR [Concomitant]
     Dosage: 850 MG, UNKNOWN
     Route: 065
  3. AMARYL [Concomitant]
     Dosage: UNK, UNKNOWN
     Route: 065
  4. RENITEC [Concomitant]
     Dosage: UNK, UNKNOWN
     Route: 065
  5. ASPIRIN [Concomitant]
     Dosage: UNK, UNKNOWN
     Route: 065
  6. ZYLORIC [Concomitant]
     Dosage: UNK, UNKNOWN
     Route: 065
  7. LIPITOR [Concomitant]
     Dosage: UNK, UNKNOWN
     Route: 065
  8. PANTOZOL [Concomitant]
     Dosage: UNK, UNKNOWN
     Route: 065
  9. CHLORPROPAMIDE [Concomitant]
     Dosage: UNK, UNKNOWN
     Route: 065

REACTIONS (2)
  - ERYTHEMA MULTIFORME [None]
  - HEPATIC ENZYME ABNORMAL [None]
